FAERS Safety Report 18507599 (Version 1)
Quarter: 2020Q4

REPORT INFORMATION
  Report Type: Spontaneous
  Country: FR (occurrence: FR)
  Receive Date: 20201116
  Receipt Date: 20201116
  Transmission Date: 20210114
  Serious: Yes (Life-Threatening, Hospitalization)
  Sender: FDA-Public Use
  Company Number: FR-BAYER-2020-237429

PATIENT
  Age: 73 Year
  Sex: Male
  Weight: 55 kg

DRUGS (7)
  1. TIORFAN [Concomitant]
     Active Substance: RACECADOTRIL
     Dosage: UNK
     Route: 048
  2. KARDEGIC [Concomitant]
     Active Substance: ASPIRIN DL-LYSINE
     Dosage: UNK
     Route: 048
  3. TEMESTA [ASTEMIZOLE] [Concomitant]
     Active Substance: ASTEMIZOLE
     Dosage: UNK
     Route: 048
  4. SERESTA [Concomitant]
     Active Substance: OXAZEPAM
     Dosage: UNK
     Route: 048
  5. STIVARGA [Suspect]
     Active Substance: REGORAFENIB
     Indication: ADENOCARCINOMA OF COLON
     Dosage: 2 DF, QD
     Route: 048
     Dates: start: 20200625, end: 20200903
  6. KESTIN [Concomitant]
     Active Substance: EBASTINE
     Dosage: UNK
     Route: 048
  7. PRIMPERAN [Concomitant]
     Active Substance: METOCLOPRAMIDE HYDROCHLORIDE
     Dosage: UNK
     Route: 048

REACTIONS (4)
  - Asthenia [Not Recovered/Not Resolved]
  - Acute coronary syndrome [Recovered/Resolved with Sequelae]
  - Palmar-plantar erythrodysaesthesia syndrome [Not Recovered/Not Resolved]
  - Diarrhoea [Not Recovered/Not Resolved]

NARRATIVE: CASE EVENT DATE: 202007
